FAERS Safety Report 15260816 (Version 1)
Quarter: 2018Q3

REPORT INFORMATION
  Report Type: Spontaneous
  Country: US (occurrence: US)
  Receive Date: 20180809
  Receipt Date: 20180809
  Transmission Date: 20181010
  Serious: No
  Sender: FDA-Public Use
  Company Number: US-BRECKENRIDGE PHARMACEUTICAL, INC.-2053508

PATIENT
  Age: 80 Year
  Sex: Male
  Weight: 68.18 kg

DRUGS (1)
  1. TERBINAFINE HYDROCHLORIDE TABLET [Suspect]
     Active Substance: TERBINAFINE HYDROCHLORIDE
     Indication: ONYCHOMYCOSIS
     Route: 048
     Dates: start: 20180618

REACTIONS (1)
  - Diarrhoea [Recovering/Resolving]
